FAERS Safety Report 7965448-7 (Version None)
Quarter: 2011Q4

REPORT INFORMATION
  Report Type: 
  Country: None (occurrence: None)
  Receive Date: 20111205
  Receipt Date: 20111107
  Transmission Date: 20120403
  Serious: Yes (Other)
  Sender: FDA-Public Use
  Company Number: 2011CP000163

PATIENT
  Age: 58 Year
  Sex: Female

DRUGS (5)
  1. CEFAZOLIN [Concomitant]
  2. LOVENOX [Concomitant]
  3. ACUPAN [Concomitant]
  4. MORPHINE [Concomitant]
  5. ACETAMINOPHEN [Suspect]
     Indication: PAIN
     Dosage: 1 DOSAGE FORM; 1/6 HOUR; IV
     Route: 042
     Dates: start: 20111004, end: 20111001

REACTIONS (7)
  - HOT FLUSH [None]
  - DIZZINESS [None]
  - INFUSION RELATED REACTION [None]
  - MALAISE [None]
  - TACHYCARDIA [None]
  - PAIN [None]
  - PARAESTHESIA [None]
